FAERS Safety Report 5440799-9 (Version None)
Quarter: 2007Q3

REPORT INFORMATION
  Report Type: 
  Country: None (occurrence: None)
  Receive Date: 20070731
  Receipt Date: 20070625
  Transmission Date: 20080115
  Serious: No
  Sender: FDA-Public Use
  Company Number: US200705006171

PATIENT
  Age: 67 Year
  Sex: Female

DRUGS (9)
  1. BYETTA [Suspect]
     Indication: TYPE 2 DIABETES MELLITUS
     Dosage: 5 UG, 2/D, SUBCUTANEOUS; 10 UG, 2/D,  SUBCUTANEOUS
     Route: 058
     Dates: start: 20070405, end: 20070519
  2. BYETTA [Suspect]
     Indication: TYPE 2 DIABETES MELLITUS
     Dosage: 5 UG, 2/D, SUBCUTANEOUS; 10 UG, 2/D,  SUBCUTANEOUS
     Route: 058
     Dates: start: 20070520
  3. EXENATIDE PEN (EXENATIDE PEN) [Concomitant]
  4. AVANDIA [Concomitant]
  5. FLOMAX [Concomitant]
  6. CRESTOR [Concomitant]
  7. ZETIA [Concomitant]
  8. ALLOPURINOL [Concomitant]
  9. DIOVAN [Concomitant]

REACTIONS (1)
  - HEART RATE IRREGULAR [None]
